FAERS Safety Report 13240821 (Version 4)
Quarter: 2018Q3

REPORT INFORMATION
  Report Type: Report from Study
  Country: GB (occurrence: GB)
  Receive Date: 20170216
  Receipt Date: 20180809
  Transmission Date: 20181010
  Serious: Yes (Life-Threatening, Hospitalization, Other)
  Sender: FDA-Public Use
  Company Number: GB-CELGENEUS-GBR-2016063315

PATIENT
  Age: 70 Year
  Sex: Female
  Weight: 54.75 kg

DRUGS (18)
  1. REVLIMID [Suspect]
     Active Substance: LENALIDOMIDE
     Route: 048
     Dates: start: 20160610, end: 20160612
  2. PEMBROLIZUMAB. [Suspect]
     Active Substance: PEMBROLIZUMAB
     Indication: PLASMA CELL MYELOMA
     Dosage: VOLUME OF INFUSION = 100 ML
     Route: 041
     Dates: start: 20160525
  3. DEXAMETHASONE. [Suspect]
     Active Substance: DEXAMETHASONE
     Indication: VOMITING
     Dosage: 40 MILLIGRAM
     Route: 048
     Dates: start: 20160601, end: 20160615
  4. DEXAMETHASONE. [Suspect]
     Active Substance: DEXAMETHASONE
     Indication: PLASMA CELL MYELOMA
     Dosage: 40 MILLIGRAM
     Route: 048
     Dates: start: 20160525, end: 20160525
  5. DALTEPARIN SODIUM [Concomitant]
     Active Substance: DALTEPARIN SODIUM
     Indication: THROMBOSIS PROPHYLAXIS
     Route: 058
     Dates: start: 20160526, end: 20160630
  6. LACTULOSE. [Concomitant]
     Active Substance: LACTULOSE
     Indication: BOWEL MOVEMENT IRREGULARITY
     Route: 065
  7. REVLIMID [Suspect]
     Active Substance: LENALIDOMIDE
     Indication: PLASMA CELL MYELOMA
     Dosage: 25 MILLIGRAM
     Route: 048
     Dates: start: 20160525, end: 20160603
  8. ACETAMINOPHEN. [Concomitant]
     Active Substance: ACETAMINOPHEN
     Indication: ABDOMINAL PAIN
     Route: 065
  9. ACETAMINOPHEN. [Concomitant]
     Active Substance: ACETAMINOPHEN
     Indication: LOWER RESPIRATORY TRACT INFECTION
  10. ADDIPHOS [Concomitant]
     Active Substance: POTASSIUM HYDROXIDE\POTASSIUM PHOSPHATE, DIBASIC\SODIUM PHOSPHATE, DIBASIC, ANHYDROUS
     Indication: BLOOD PHOSPHORUS DECREASED
     Route: 065
  11. DOMPERIDONE [Concomitant]
     Active Substance: DOMPERIDONE
     Indication: PRODUCT USED FOR UNKNOWN INDICATION
     Route: 065
     Dates: start: 20160525
  12. OMEPRAZOLE. [Concomitant]
     Active Substance: OMEPRAZOLE
     Indication: PRODUCT USED FOR UNKNOWN INDICATION
     Route: 065
     Dates: start: 20160525
  13. DEXTROSE. [Concomitant]
     Active Substance: DEXTROSE
     Indication: DEHYDRATION
     Route: 065
  14. SENNA [Suspect]
     Active Substance: SENNA LEAF\SENNOSIDES\SENNOSIDES A AND B
     Indication: CONSTIPATION
     Dosage: 7.5 MILLIGRAM
     Route: 048
     Dates: start: 20160602, end: 20160603
  15. ALLOPURINOL. [Concomitant]
     Active Substance: ALLOPURINOL
     Indication: PROPHYLAXIS
     Route: 065
     Dates: start: 20160525, end: 20160603
  16. PLASMA?LYTE 148 [Concomitant]
     Active Substance: MAGNESIUM CHLORIDE\POTASSIUM CHLORIDE\SODIUM ACETATE\SODIUM CHLORIDE\SODIUM GLUCONATE
     Indication: DEHYDRATION
     Route: 065
  17. ONDANSETRON [Concomitant]
     Active Substance: ONDANSETRON
     Indication: PRODUCT USED FOR UNKNOWN INDICATION
     Route: 065
     Dates: start: 20160526
  18. RED BLOOD CELLS [Concomitant]
     Active Substance: HUMAN RED BLOOD CELL
     Indication: ANAEMIA
     Route: 065

REACTIONS (6)
  - Stevens-Johnson syndrome [Recovered/Resolved with Sequelae]
  - Blood bilirubin increased [Recovered/Resolved]
  - Lower respiratory tract infection [Recovered/Resolved]
  - Atrial fibrillation [Recovered/Resolved]
  - Transaminases increased [Recovered/Resolved]
  - Diarrhoea [Recovered/Resolved]

NARRATIVE: CASE EVENT DATE: 20160603
